FAERS Safety Report 5746772-5 (Version None)
Quarter: 2008Q2

REPORT INFORMATION
  Report Type: 
  Country: None (occurrence: None)
  Receive Date: 20080522
  Receipt Date: 20080512
  Transmission Date: 20081010
  Serious: Yes (Other)
  Sender: FDA-Public Use
  Company Number: US-PFIZER INC-2008024664

PATIENT
  Sex: Female
  Weight: 54.545 kg

DRUGS (4)
  1. AZULFIDINE EN-TABS [Suspect]
     Indication: ANKYLOSING SPONDYLITIS
     Dosage: DAILY DOSE:2GRAM
     Dates: start: 20051201, end: 20080305
  2. AZULFIDINE EN-TABS [Suspect]
     Indication: FATIGUE
  3. AZULFIDINE EN-TABS [Suspect]
     Indication: DECREASED INTEREST
  4. FOSAMAX PLUS D [Concomitant]

REACTIONS (4)
  - DECREASED INTEREST [None]
  - HYPERVIGILANCE [None]
  - MALAISE [None]
  - SEDATION [None]
